FAERS Safety Report 16863682 (Version 1)
Quarter: 2019Q3

REPORT INFORMATION
  Report Type: Spontaneous
  Country: US (occurrence: US)
  Receive Date: 20190927
  Receipt Date: 20190927
  Transmission Date: 20191005
  Serious: Yes (Other)
  Sender: FDA-Public Use
  Company Number: US-GLAXOSMITHKLINE-US2019173640

PATIENT
  Age: 87 Year
  Sex: Female

DRUGS (1)
  1. ANORO ELLIPTA [Suspect]
     Active Substance: UMECLIDINIUM BROMIDE\VILANTEROL TRIFENATATE
     Indication: WHEEZING
     Dosage: 1 DF, UNK
     Route: 065
     Dates: start: 20190923

REACTIONS (9)
  - Abdominal discomfort [Unknown]
  - Bronchitis [Unknown]
  - Dyspnoea [Unknown]
  - Blood pressure increased [Unknown]
  - Pneumonia [Unknown]
  - Dizziness [Unknown]
  - Presyncope [Unknown]
  - Hypersensitivity [Unknown]
  - Heart rate increased [Unknown]

NARRATIVE: CASE EVENT DATE: 20190923
